FAERS Safety Report 15792928 (Version 1)
Quarter: 2019Q1

REPORT INFORMATION
  Report Type: Spontaneous
  Country: CA (occurrence: CA)
  Receive Date: 20190107
  Receipt Date: 20190107
  Transmission Date: 20190417
  Serious: Yes (Hospitalization)
  Sender: FDA-Public Use
  Company Number: CA-CELLTRION INC.-2018CA024164

PATIENT

DRUGS (5)
  1. INFLECTRA [Suspect]
     Active Substance: INFLIXIMAB-DYYB
     Dosage: 600 MG, CYCLIC WEEK 0,2,6 AND EVERY 8 WEEKS
     Route: 042
     Dates: start: 20181228, end: 20181228
  2. METRONIDAZOLE. [Concomitant]
     Active Substance: METRONIDAZOLE
     Dosage: UNK
     Dates: start: 201711
  3. INFLECTRA [Suspect]
     Active Substance: INFLIXIMAB-DYYB
     Indication: CROHN^S DISEASE
     Dosage: 600 MG, CYCLIC WEEK 0,2,6 AND EVERY 8 WEEKS
     Route: 042
     Dates: start: 20181114, end: 20181114
  4. CIPRO [Concomitant]
     Active Substance: CIPROFLOXACIN HYDROCHLORIDE
     Dosage: UNK
     Dates: start: 201711
  5. INFLECTRA [Suspect]
     Active Substance: INFLIXIMAB-DYYB
     Dosage: 600 MG, CYCLIC WEEK 0,2,6 AND EVERY 8 WEEKS
     Route: 042
     Dates: start: 20181128, end: 20181128

REACTIONS (4)
  - Anal fissure [Unknown]
  - Condition aggravated [Unknown]
  - Perineal abscess [Unknown]
  - Product use issue [Unknown]
